FAERS Safety Report 18059665 (Version 3)
Quarter: 2020Q3

REPORT INFORMATION
  Report Type: Report from Study
  Country: DE (occurrence: DE)
  Receive Date: 20200723
  Receipt Date: 20200930
  Transmission Date: 20201103
  Serious: No
  Sender: FDA-Public Use
  Company Number: DE-GLAXOSMITHKLINE-DE2020GSK136440

PATIENT
  Age: 59 Year
  Sex: Female
  Weight: 97 kg

DRUGS (17)
  1. FOSTER [Concomitant]
     Active Substance: BECLOMETHASONE\FORMOTEROL
     Dosage: 300/18 UG, QD
     Dates: start: 201708, end: 20181120
  2. PREDNISOLON [Concomitant]
     Active Substance: PREDNISOLONE
     Dosage: 40 MG, QD
     Dates: start: 20200115, end: 20200119
  3. FOSTER [Concomitant]
     Active Substance: BECLOMETHASONE\FORMOTEROL
     Dosage: 600/18 UG, QD
     Dates: start: 20190820
  4. PREDNISOLON [Concomitant]
     Active Substance: PREDNISOLONE
     Dosage: 40 MG, QD
     Dates: start: 20191210, end: 20191214
  5. SPIRIVA RESPIMAT [Concomitant]
     Active Substance: TIOTROPIUM BROMIDE
     Indication: ASTHMA
     Dosage: UNK
     Dates: start: 20181120
  6. PREDNISOLON [Concomitant]
     Active Substance: PREDNISOLONE
     Dosage: 40 MG, QD
     Dates: start: 20181120, end: 20181126
  7. PREDNISOLON [Concomitant]
     Active Substance: PREDNISOLONE
     Dosage: 40 MG, QD
     Dates: start: 20190416, end: 20190420
  8. SALBUTAMOL DOSIERAEROSOL [Concomitant]
     Active Substance: ALBUTEROL
     Indication: ASTHMA
     Dosage: UNK
     Dates: start: 20121119
  9. AMOXICILLIN. [Concomitant]
     Active Substance: AMOXICILLIN
     Indication: ASTHMA
     Dosage: UNK
     Dates: start: 20200213, end: 20200215
  10. FOSTER [Concomitant]
     Active Substance: BECLOMETHASONE\FORMOTEROL
     Dosage: 300/18 UG, QD
     Dates: start: 20190101, end: 20190416
  11. FOSTER [Concomitant]
     Active Substance: BECLOMETHASONE\FORMOTEROL
     Dosage: 600/18 UG, QD
     Dates: start: 20181120, end: 20190101
  12. PREDNISOLON [Concomitant]
     Active Substance: PREDNISOLONE
     Dosage: 40 MG, QD
     Dates: start: 20181010, end: 20181014
  13. FOSTER [Concomitant]
     Active Substance: BECLOMETHASONE\FORMOTEROL
     Dosage: 600/18 UG, QD
     Dates: start: 20190416, end: 20190820
  14. PREDNISOLON [Concomitant]
     Active Substance: PREDNISOLONE
     Dosage: 40 MG, QD
     Dates: start: 20200210, end: 20200212
  15. PREDNISOLON [Concomitant]
     Active Substance: PREDNISOLONE
     Dosage: 50 MG, QD
     Dates: start: 20200514, end: 20200518
  16. MEPOLIZUMAB [Suspect]
     Active Substance: MEPOLIZUMAB
     Indication: ASTHMA
     Dosage: 100 MG
     Route: 058
     Dates: start: 20190912, end: 20200711
  17. PREDNISOLON [Concomitant]
     Active Substance: PREDNISOLONE
     Dosage: 50 MG, QD
     Dates: start: 20200213, end: 20200215

REACTIONS (5)
  - Growing pains [Recovered/Resolved]
  - Growing pains [Recovered/Resolved]
  - Pyrexia [Recovered/Resolved]
  - Swelling of eyelid [Recovered/Resolved]
  - Growing pains [Recovered/Resolved]

NARRATIVE: CASE EVENT DATE: 20200510
